FAERS Safety Report 22635465 (Version 1)
Quarter: 2023Q2

REPORT INFORMATION
  Report Type: Spontaneous
  Country: CN (occurrence: CN)
  Receive Date: 20230623
  Receipt Date: 20230623
  Transmission Date: 20230722
  Serious: Yes (Hospitalization, Other)
  Sender: FDA-Public Use
  Company Number: CN-009507513-2306CHN010214

PATIENT
  Age: 65 Year
  Sex: Female
  Weight: 59.5 kg

DRUGS (3)
  1. KEYTRUDA [Suspect]
     Active Substance: PEMBROLIZUMAB
     Indication: Symptomatic treatment
     Dosage: 200 MG, ONCE
     Route: 041
     Dates: start: 20200404, end: 20200404
  2. NEDAPLATIN [Suspect]
     Active Substance: NEDAPLATIN
     Indication: Symptomatic treatment
     Dosage: 120 MG, ONCE
     Route: 041
     Dates: start: 20200404, end: 20200404
  3. PACLITAXEL [Suspect]
     Active Substance: PACLITAXEL
     Indication: Symptomatic treatment
     Dosage: 200 MG, ONCE
     Route: 041
     Dates: start: 20200404, end: 20200404

REACTIONS (3)
  - Thrombocytopenia [Recovering/Resolving]
  - Haemoglobin decreased [Unknown]
  - White blood cell count abnormal [Unknown]

NARRATIVE: CASE EVENT DATE: 20200519
